FAERS Safety Report 9128932 (Version 1)
Quarter: 2013Q1

REPORT INFORMATION
  Report Type: Report from Study
  Country: US (occurrence: US)
  Receive Date: 20130228
  Receipt Date: 20130228
  Transmission Date: 20140127
  Serious: Yes (Other)
  Sender: FDA-Public Use
  Company Number: US-ROCHE-1196365

PATIENT
  Age: 39 Year
  Sex: Female
  Weight: 84.44 kg

DRUGS (1)
  1. XOLAIR [Suspect]
     Indication: ASTHMA
     Route: 058
     Dates: start: 201208, end: 201208

REACTIONS (1)
  - Foot operation [Recovered/Resolved]
